FAERS Safety Report 11148535 (Version 2)
Quarter: 2017Q4

REPORT INFORMATION
  Report Type: Spontaneous
  Country: NL (occurrence: NL)
  Receive Date: 20150529
  Receipt Date: 20171211
  Transmission Date: 20180320
  Serious: Yes (Other)
  Sender: FDA-Public Use
  Company Number: NL-OTSUKA-DJ201407073

PATIENT
  Age: 21 Year
  Sex: Male

DRUGS (2)
  1. DIAZEPAM. [Concomitant]
     Active Substance: DIAZEPAM
     Indication: PRODUCT USED FOR UNKNOWN INDICATION
     Dosage: UNK
     Route: 065
  2. ARIPIPRAZOLE. [Suspect]
     Active Substance: ARIPIPRAZOLE
     Indication: PSYCHOTIC DISORDER
     Dosage: UNK
     Route: 048
     Dates: start: 20140824, end: 20140909

REACTIONS (10)
  - Depression [Unknown]
  - Sleep disorder [Unknown]
  - Migraine [Unknown]
  - Nausea [Unknown]
  - Off label use [Unknown]
  - Aggression [Unknown]
  - Pyrexia [Unknown]
  - Mood swings [Unknown]
  - Erectile dysfunction [Unknown]
  - Restlessness [Unknown]

NARRATIVE: CASE EVENT DATE: 20140828
